FAERS Safety Report 6650766 (Version 2)
Quarter: 2014Q2

REPORT INFORMATION
  Report Type: Report from Study
  Country: NO (occurrence: NO)
  Receive Date: 20080528
  Receipt Date: 20140613
  Transmission Date: 20141212
  Serious: Yes (Disabling)
  Sender: FDA-Public Use
  Company Number: NO-ALLERGAN-0806199US

PATIENT
  Age: 11 Year
  Sex: Male
  Weight: 31 kg

DRUGS (3)
  1. BLINDED BOTULINUM TOXIN TYPE A - GENERAL (9060X) [Suspect]
     Indication: DROOLING
     Dosage: 100 UNITS, SINGLE
     Dates: start: 20080220, end: 20080220
  2. OSLOPOT [Concomitant]
     Indication: EPILEPSY
     Dosage: 200 MG, SINGLE
     Route: 048
     Dates: start: 200802
  3. LOSEC MUPS HP [Concomitant]
     Indication: GASTROOESOPHAGEAL REFLUX DISEASE
     Dosage: 20 MG, QD
     Dates: start: 200802

REACTIONS (2)
  - Speech disorder [Recovered/Resolved]
  - Saliva altered [Recovered/Resolved]
